FAERS Safety Report 14381058 (Version 4)
Quarter: 2018Q1

REPORT INFORMATION
  Report Type: Spontaneous
  Country: US (occurrence: US)
  Receive Date: 20180112
  Receipt Date: 20180219
  Transmission Date: 20180509
  Serious: Yes (Other)
  Sender: FDA-Public Use
  Company Number: US-PFIZER INC-2018011983

PATIENT
  Age: 78 Year
  Sex: Male

DRUGS (1)
  1. CALAN SR [Suspect]
     Active Substance: VERAPAMIL HYDROCHLORIDE
     Indication: HYPERTENSION
     Dosage: 240MG ONCE A DAY
     Route: 048
     Dates: start: 20170926

REACTIONS (1)
  - Drug ineffective [Unknown]
